FAERS Safety Report 12190897 (Version 2)
Quarter: 2016Q1

REPORT INFORMATION
  Report Type: Spontaneous
  Country: CN (occurrence: CN)
  Receive Date: 20160318
  Receipt Date: 20160322
  Transmission Date: 20160526
  Serious: Yes (Hospitalization, Other)
  Sender: FDA-Public Use
  Company Number: CN-PFIZER INC-2016158245

PATIENT
  Age: 54 Year
  Sex: Male

DRUGS (1)
  1. LIPITOR [Suspect]
     Active Substance: ATORVASTATIN CALCIUM
     Dosage: UNK
     Route: 048

REACTIONS (7)
  - Arthralgia [Unknown]
  - Decreased appetite [Unknown]
  - Joint warmth [Unknown]
  - Renal failure [Unknown]
  - Arteriosclerosis [Unknown]
  - Peripheral venous disease [Unknown]
  - Insomnia [Unknown]

NARRATIVE: CASE EVENT DATE: 20160304
